FAERS Safety Report 18783085 (Version 2)
Quarter: 2021Q1

REPORT INFORMATION
  Report Type: Report from Study
  Country: CO (occurrence: CO)
  Receive Date: 20210125
  Receipt Date: 20210217
  Transmission Date: 20210419
  Serious: Yes (Hospitalization)
  Sender: FDA-Public Use
  Company Number: CO-JNJFOC-20210123350

PATIENT
  Age: 74 Year
  Sex: Male
  Weight: 78 kg

DRUGS (2)
  1. STELARA [Suspect]
     Active Substance: USTEKINUMAB
     Route: 058
     Dates: start: 20180208
  2. STELARA [Suspect]
     Active Substance: USTEKINUMAB
     Indication: PSORIASIS
     Route: 058
     Dates: start: 20121206

REACTIONS (5)
  - Pneumonia [Recovering/Resolving]
  - Herpes zoster [Recovering/Resolving]
  - Pulmonary fibrosis [Recovering/Resolving]
  - Hypertension [Recovering/Resolving]
  - Blood glucose increased [Recovering/Resolving]

NARRATIVE: CASE EVENT DATE: 202012
